FAERS Safety Report 7862230-6 (Version None)
Quarter: 2011Q4

REPORT INFORMATION
  Report Type: 
  Country: None (occurrence: None)
  Receive Date: 20111027
  Receipt Date: 20101105
  Transmission Date: 20120403
  Serious: No
  Sender: FDA-Public Use
  Company Number: US-AMGEN-KDL425598

PATIENT
  Age: 17 Year
  Sex: Female
  Weight: 62.585 kg

DRUGS (6)
  1. ENBREL [Suspect]
     Dates: start: 20010701
  2. FOLIC ACID [Concomitant]
     Dosage: UNK UNK, UNK
  3. ASCORBIC ACID [Concomitant]
     Dosage: UNK UNK, UNK
  4. ACETAMINOPHEN [Concomitant]
     Dosage: UNK UNK, UNK
  5. ENBREL [Suspect]
     Indication: JUVENILE ARTHRITIS
     Dosage: 50 MG, QWK
     Route: 058
     Dates: start: 20091009
  6. MELOXICAM [Concomitant]
     Dosage: UNK UNK, UNK

REACTIONS (7)
  - INJECTION SITE REACTION [None]
  - INJECTION SITE HAEMATOMA [None]
  - INJECTION SITE PRURITUS [None]
  - INJECTION SITE SWELLING [None]
  - REACTION TO PRESERVATIVES [None]
  - INJECTION SITE ERYTHEMA [None]
  - INJECTION SITE PAIN [None]
